FAERS Safety Report 23122669 (Version 2)
Quarter: 2023Q4

REPORT INFORMATION
  Report Type: Report from Study
  Country: JP (occurrence: JP)
  Receive Date: 20231030
  Receipt Date: 20231105
  Transmission Date: 20240110
  Serious: Yes (Hospitalization, Other)
  Sender: FDA-Public Use
  Company Number: JP-TAKEDA-2023TJP014154

PATIENT
  Age: 58 Year
  Sex: Female

DRUGS (2)
  1. BRIGATINIB [Suspect]
     Active Substance: BRIGATINIB
     Indication: Non-small cell lung cancer
     Dosage: 90 MILLIGRAM
     Route: 065
     Dates: start: 20230525, end: 20230531
  2. BRIGATINIB [Suspect]
     Active Substance: BRIGATINIB
     Dosage: 180 MILLIGRAM
     Route: 065
     Dates: start: 20230601

REACTIONS (3)
  - Subarachnoid haemorrhage [Recovering/Resolving]
  - Fall [Recovering/Resolving]
  - Cytology abnormal [Unknown]

NARRATIVE: CASE EVENT DATE: 20230917
